FAERS Safety Report 4563643-0 (Version None)
Quarter: 2005Q1

REPORT INFORMATION
  Report Type: 
  Country: None (occurrence: None)
  Receive Date: 20050124
  Receipt Date: 20050113
  Transmission Date: 20050727
  Serious: Yes (Other)
  Sender: FDA-Public Use
  Company Number: 2005-01-0955

PATIENT
  Age: 49 Year
  Sex: Male

DRUGS (3)
  1. PEG-INTRON [Suspect]
     Indication: HEPATITIS C
     Dosage: 150-120*QW SUBCUTANEOUS
     Route: 058
     Dates: start: 20040527, end: 20041129
  2. PEG-INTRON [Suspect]
     Indication: HEPATITIS C
     Dosage: 150-120*QW SUBCUTANEOUS
     Route: 058
     Dates: start: 20041129, end: 20041223
  3. RIBAVIRIN [Suspect]
     Indication: HEPATITIS C
     Dosage: 1200 MG QD ORAL
     Route: 048
     Dates: start: 20040527, end: 20041223

REACTIONS (7)
  - GANGRENE [None]
  - INJECTION SITE DISCOMFORT [None]
  - NEUTROPHIL COUNT DECREASED [None]
  - SKIN DISCOLOURATION [None]
  - SKIN INFECTION [None]
  - SKIN NECROSIS [None]
  - STAPHYLOCOCCAL INFECTION [None]
